FAERS Safety Report 26194836 (Version 1)
Quarter: 2025Q4

REPORT INFORMATION
  Report Type: Report from Study
  Country: CA (occurrence: CA)
  Receive Date: 20251224
  Receipt Date: 20251224
  Transmission Date: 20260119
  Serious: Yes (Other)
  Sender: BIOCON
  Company Number: CA-BIOCON BIOLOGICS LIMITED-BBL2025006940

PATIENT

DRUGS (2)
  1. BEVACIZUMAB [Suspect]
     Active Substance: BEVACIZUMAB
     Indication: Diabetic retinal oedema
     Dosage: UNK
     Route: 065
  2. FARICIMAB [Suspect]
     Active Substance: FARICIMAB
     Indication: Diabetic retinal oedema
     Dosage: UNK
     Route: 065

REACTIONS (3)
  - Vision blurred [Unknown]
  - Off label use [Unknown]
  - Drug ineffective [Unknown]
